FAERS Safety Report 26075348 (Version 1)
Quarter: 2025Q4

REPORT INFORMATION
  Report Type: Other
  Country: US (occurrence: US)
  Receive Date: 20251121
  Receipt Date: 20251121
  Transmission Date: 20260117
  Serious: No
  Sender: VERASTEM
  Company Number: US-VERASTEM-250903US-AFCPK-00560

PATIENT

DRUGS (2)
  1. AVMAPKI FAKZYNJA CO-PACK [Suspect]
     Active Substance: AVUTOMETINIB POTASSIUM\DEFACTINIB HYDROCHLORIDE
     Indication: Ovarian cancer
     Dosage: AVMAPKI 3.2MG ON DAYS 1,4, 8, 11, 15, 18, FAKZYNJA 200MG TWICE DAILY ON DAYS 1-21, TAKEN IN A 28 A D
     Route: 048
     Dates: start: 20250819
  2. GABAPENTIN [Concomitant]
     Active Substance: GABAPENTIN
     Indication: Hallucination

REACTIONS (3)
  - Hallucination [Unknown]
  - Peripheral swelling [Unknown]
  - Vision blurred [Recovered/Resolved]

NARRATIVE: CASE EVENT DATE: 20250901
